FAERS Safety Report 9353212 (Version 3)
Quarter: 2013Q3

REPORT INFORMATION
  Report Type: Spontaneous
  Country: US (occurrence: None)
  Receive Date: 20130612
  Receipt Date: 20130812
  Transmission Date: 20140515
  Serious: Yes (Hospitalization, Other)
  Sender: FDA-Public Use
  Company Number: JPI-P-032680

PATIENT
  Age: 60 Year
  Sex: Female

DRUGS (2)
  1. XYREM [Suspect]
     Indication: NARCOLEPSY
     Dosage: 4.5 GM (2.25 GM, 2 IN 1 D), ORAL
     Route: 048
     Dates: start: 20120321
  2. UNSPECIFIED MEDICATIONS [Concomitant]

REACTIONS (5)
  - Ankle fracture [None]
  - Fall [None]
  - Erythema [None]
  - Dyspnoea [None]
  - Oedema peripheral [None]
